FAERS Safety Report 21342874 (Version 2)
Quarter: 2022Q4

REPORT INFORMATION
  Report Type: Spontaneous
  Country: US (occurrence: US)
  Receive Date: 20220916
  Receipt Date: 20221028
  Transmission Date: 20230112
  Serious: No
  Sender: FDA-Public Use
  Company Number: US-GSK-US2022GSK132820

PATIENT
  Age: 75 Year
  Sex: Female

DRUGS (2)
  1. WELLBUTRIN XL [Suspect]
     Active Substance: BUPROPION HYDROCHLORIDE
     Indication: Product used for unknown indication
     Dosage: 300 MG, QD , 1 IN 24 HR
     Route: 048
  2. SONATA [Concomitant]
     Active Substance: ZALEPLON
     Indication: Product used for unknown indication
     Dosage: UNK, QD , 1 IN 24 HR
     Dates: start: 2022

REACTIONS (3)
  - Rash [Recovering/Resolving]
  - Allergic reaction to excipient [Recovering/Resolving]
  - Product substitution issue [Unknown]
